FAERS Safety Report 19247326 (Version 1)
Quarter: 2021Q2

REPORT INFORMATION
  Report Type: Report from Study
  Country: CO (occurrence: CO)
  Receive Date: 20210512
  Receipt Date: 20210512
  Transmission Date: 20210717
  Serious: Yes (Other)
  Sender: FDA-Public Use
  Company Number: NVSC2021CO100312

PATIENT
  Age: 71 Year
  Sex: Female
  Weight: 65 kg

DRUGS (2)
  1. LOSARTAN. [Suspect]
     Active Substance: LOSARTAN
     Indication: HYPERTENSION
     Dosage: UNK, Q12H (STARTED 30 YEARS AGO)
     Route: 048
  2. FUROSEMIDE. [Concomitant]
     Active Substance: FUROSEMIDE
     Indication: FLUID RETENTION
     Dosage: UNK, QD (STARTED 30 YEARS AGO)
     Route: 048

REACTIONS (3)
  - Off label use [Unknown]
  - Breast cancer metastatic [Unknown]
  - Neck mass [Unknown]

NARRATIVE: CASE EVENT DATE: 201910
